FAERS Safety Report 9538617 (Version 5)
Quarter: 2014Q2

REPORT INFORMATION
  Report Type: Spontaneous
  Country: US (occurrence: None)
  Receive Date: 20130917
  Receipt Date: 20140627
  Transmission Date: 20141212
  Serious: Yes (Other)
  Sender: FDA-Public Use
  Company Number: ADR-2013-01606

PATIENT
  Sex: Male

DRUGS (17)
  1. BACLOFEN [Suspect]
     Indication: SPINAL LAMINECTOMY
     Dosage: 14.1MCG/DAY
  2. BUPIVACAINE [Suspect]
     Dosage: 2.34MG/DAY
  3. DILAUDID [Suspect]
     Dosage: 3MG/DAY
  4. PERCOCET [Concomitant]
  5. AMBIEN  CR [Concomitant]
  6. PROVIGIL (MODAFINIL) [Concomitant]
  7. WELLBUTRIN XL [Concomitant]
  8. LEXAPRO (ESCITALOPRAM OXALATE) [Concomitant]
  9. ELAVIL [Concomitant]
  10. LIDODERM [Concomitant]
  11. PREVACID (LANSOPRAZOLE) [Concomitant]
  12. GLUCOSAMINE-CHONDROITIN [Concomitant]
  13. DOCUSATE SODIUM [Concomitant]
  14. SENNA [Concomitant]
  15. MARCAINE WITH EPINEPHRINE [Concomitant]
  16. TESTOSTERONE CYPIONATE [Concomitant]
  17. ATENOLOL [Concomitant]

REACTIONS (50)
  - Pain in extremity [None]
  - Musculoskeletal pain [None]
  - Arthralgia [None]
  - Arthralgia [None]
  - Back pain [None]
  - Arthralgia [None]
  - Pain in extremity [None]
  - Groin pain [None]
  - Hyperhidrosis [None]
  - Blindness [None]
  - Diplopia [None]
  - Photophobia [None]
  - Vision blurred [None]
  - Tinnitus [None]
  - Hypoacusis [None]
  - Muscle spasms [None]
  - Snoring [None]
  - Constipation [None]
  - Nocturia [None]
  - Bone pain [None]
  - Arthralgia [None]
  - Back pain [None]
  - Impaired healing [None]
  - Balance disorder [None]
  - Amnesia [None]
  - Asthenia [None]
  - Depression [None]
  - Thirst [None]
  - Walking aid user [None]
  - Implant site rash [None]
  - Pain [None]
  - Muscle spasticity [None]
  - Wheezing [None]
  - Dysuria [None]
  - Muscle spasms [None]
  - Joint swelling [None]
  - Joint stiffness [None]
  - Alopecia [None]
  - Hypoaesthesia [None]
  - Paraesthesia [None]
  - Balance disorder [None]
  - Pollakiuria [None]
  - Inadequate analgesia [None]
  - Paraesthesia [None]
  - Rash erythematous [None]
  - Headache [None]
  - Pain in extremity [None]
  - Device malfunction [None]
  - Incorrect dose administered by device [None]
  - Urinary hesitation [None]
